FAERS Safety Report 14656952 (Version 1)
Quarter: 2018Q1

REPORT INFORMATION
  Report Type: Spontaneous
  Country: US (occurrence: US)
  Receive Date: 20180319
  Receipt Date: 20180319
  Transmission Date: 20180509
  Serious: No
  Sender: FDA-Public Use
  Company Number: US-SA-2017SA196486

PATIENT
  Age: 96 Year
  Sex: Female

DRUGS (2)
  1. NASACORT ALLERGY 24HR [Suspect]
     Active Substance: TRIAMCINOLONE ACETONIDE
     Indication: EYE DISORDER
     Dosage: DOSAGE FORM SPRAY.
     Route: 065
     Dates: start: 20170917
  2. NASACORT ALLERGY 24HR [Suspect]
     Active Substance: TRIAMCINOLONE ACETONIDE
     Indication: RHINORRHOEA
     Dosage: DOSAGE FORM SPRAY.
     Route: 065
     Dates: start: 20170917

REACTIONS (2)
  - Drug ineffective [Unknown]
  - Vision blurred [Unknown]
